FAERS Safety Report 12615997 (Version 3)
Quarter: 2016Q4

REPORT INFORMATION
  Report Type: Spontaneous
  Country: US (occurrence: US)
  Receive Date: 20160802
  Receipt Date: 20161103
  Transmission Date: 20170207
  Serious: Yes (Other)
  Sender: FDA-Public Use
  Company Number: US-OTSUKA-2016_018134

PATIENT
  Age: 19 Year
  Sex: Female

DRUGS (1)
  1. ONZETRA [Suspect]
     Active Substance: SUMATRIPTAN SUCCINATE
     Indication: MIGRAINE
     Dosage: UNK
     Route: 065
     Dates: start: 20160723, end: 20160723

REACTIONS (3)
  - Headache [Unknown]
  - Insomnia [Unknown]
  - Crying [Unknown]

NARRATIVE: CASE EVENT DATE: 20160723
